FAERS Safety Report 8037339-7 (Version None)
Quarter: 2012Q1

REPORT INFORMATION
  Report Type: 
  Country: None (occurrence: None)
  Receive Date: 20120111
  Receipt Date: 20120110
  Transmission Date: 20120608
  Serious: Yes (Hospitalization, Other)
  Sender: FDA-Public Use
  Company Number: US-BAYER-201029693NA

PATIENT
  Age: 41 Year
  Sex: Female
  Weight: 143.76 kg

DRUGS (16)
  1. CYMBALTA [Concomitant]
     Dosage: 60 MG, QD
  2. BETASERON [Suspect]
     Indication: RELAPSING-REMITTING MULTIPLE SCLEROSIS
     Dosage: BETAJECT
     Route: 058
     Dates: start: 20100330, end: 20100101
  3. ACETYLSALICYLIC ACID SRT [Concomitant]
     Dosage: 325 MG,QD
  4. ALPHA LIPOIC ACID [Concomitant]
     Dosage: 200 MG, QD
  5. BETASERON [Suspect]
     Dosage: BETAJECT
     Route: 058
     Dates: start: 20100101, end: 20111030
  6. VERAPAMIL [Concomitant]
     Dosage: 120 MG, UNK
  7. NEURONTIN [Concomitant]
     Dosage: 300 MG, 1 TABLET IN AM AND 2 TABLETS IN PM
  8. GLIMEPIRIDE [Concomitant]
     Dosage: 1 MG, BID
  9. TRAMADOL HCL [Concomitant]
     Dosage: 500 MG, BID
  10. FISH OIL [Concomitant]
     Dosage: 500 MG, UNK
  11. OXYGEN [Concomitant]
     Indication: SLEEP APNOEA SYNDROME
     Dosage: AT NIGHT. NASAL CANULA
     Route: 045
  12. BETASERON [Suspect]
     Dosage: 8 MIU, QOD
     Route: 058
     Dates: start: 20111121
  13. JANUVIA [Concomitant]
     Dosage: 100 MG, QD
  14. LANTUS [Concomitant]
     Dosage: .55 U, HS
  15. HYDROCHLOROTHIAZIDE [Concomitant]
     Dosage: 12.5 MG, QD
  16. LISINOPRIL [Concomitant]
     Dosage: 40 MG, QD

REACTIONS (18)
  - HYPOAESTHESIA [None]
  - CHILLS [None]
  - MOBILITY DECREASED [None]
  - CHEST PAIN [None]
  - TRANSIENT ISCHAEMIC ATTACK [None]
  - LOSS OF CONSCIOUSNESS [None]
  - HALLUCINATION [None]
  - COMPLEX PARTIAL SEIZURES [None]
  - AMNESIA [None]
  - HALLUCINATION, VISUAL [None]
  - ARTHRALGIA [None]
  - SLEEP APNOEA SYNDROME [None]
  - MULTIPLE SCLEROSIS RELAPSE [None]
  - FEELING OF BODY TEMPERATURE CHANGE [None]
  - HEADACHE [None]
  - JOINT CREPITATION [None]
  - FEELING ABNORMAL [None]
  - HYPOXIA [None]
